FAERS Safety Report 11448481 (Version 1)
Quarter: 2015Q3

REPORT INFORMATION
  Report Type: Spontaneous
  Country: TR (occurrence: TR)
  Receive Date: 20150902
  Receipt Date: 20150902
  Transmission Date: 20151125
  Serious: Yes (Other)
  Sender: FDA-Public Use
  Company Number: TR-BAYER-2015-411872

PATIENT
  Age: 50 Year
  Sex: Female

DRUGS (3)
  1. DACARBAZINE. [Suspect]
     Active Substance: DACARBAZINE
     Indication: METASTATIC MALIGNANT MELANOMA
     Dosage: 300 MG/M2
  2. INTERFERON ALFA-2A [Concomitant]
     Active Substance: INTERFERON ALFA-2A
     Indication: METASTATIC MALIGNANT MELANOMA
     Dosage: 5 MU, TIW
     Route: 058
  3. CISPLATIN. [Concomitant]
     Active Substance: CISPLATIN
     Indication: METASTATIC MALIGNANT MELANOMA
     Dosage: 30 MG/M2

REACTIONS (5)
  - Metastases to soft tissue [None]
  - Metastases to skin [None]
  - Vitiligo [None]
  - Hypothyroidism [None]
  - Blood lactate dehydrogenase increased [None]
